FAERS Safety Report 9347746 (Version 5)
Quarter: 2013Q4

REPORT INFORMATION
  Report Type: Spontaneous
  Country: US (occurrence: US)
  Receive Date: 20130614
  Receipt Date: 20131108
  Transmission Date: 20140711
  Serious: Yes (Other)
  Sender: FDA-Public Use
  Company Number: US-PFIZER INC-2013176286

PATIENT
  Age: 47 Year
  Sex: Male
  Weight: 78.01 kg

DRUGS (14)
  1. SUTENT [Suspect]
     Indication: RENAL CELL CARCINOMA
     Dosage: 37.5 MG, 1X/DAY (TAKING ONE CAPSULE OF 12.5MG AND ONE CAPSULE OF 25MG TOGETHER)
     Route: 048
     Dates: start: 20130520
  2. ZOLOFT [Concomitant]
     Dosage: UNK
  3. VIAGRA [Concomitant]
     Dosage: UNK
  4. ACIPHEX [Concomitant]
     Dosage: UNK
  5. LISINOPRIL [Concomitant]
     Indication: HYPERTENSION
     Dosage: UNK, 1X/DAY
  6. LORATADINE [Concomitant]
     Dosage: UNK
  7. ZINC [Concomitant]
     Dosage: UNK
  8. VITAMIN B1 [Concomitant]
     Dosage: UNK
  9. TERAZOSIN [Concomitant]
     Indication: HYPERTENSION
     Dosage: 6 MG, 1X/DAY
  10. COUMADINE [Concomitant]
     Dosage: UNK
  11. INNOPRAN [Concomitant]
     Indication: HYPERTENSION
     Dosage: UNK
  12. LISINOPRIL W/HYDROCHLOROTHIAZIDE [Concomitant]
     Dosage: UNK
  13. QUINAPRIL [Concomitant]
     Dosage: UNK
  14. SANDOSTATIN [Concomitant]
     Dosage: UNK

REACTIONS (8)
  - Urinary tract infection [Unknown]
  - Platelet count decreased [Unknown]
  - Blood pressure increased [Recovered/Resolved]
  - Asthenia [Unknown]
  - Fatigue [Unknown]
  - Flatulence [Unknown]
  - Diarrhoea [Unknown]
  - Back pain [Unknown]
